FAERS Safety Report 4687849-5 (Version None)
Quarter: 2005Q2

REPORT INFORMATION
  Report Type: 
  Country: None (occurrence: None)
  Receive Date: 20050607
  Receipt Date: 20050601
  Transmission Date: 20051028
  Serious: Yes (Disabling)
  Sender: FDA-Public Use
  Company Number: THQ2005A00456

PATIENT
  Age: 62 Year
  Sex: Male

DRUGS (1)
  1. PROSTAP (LEUPROLIDE ACETATE) (INJECTION) [Suspect]
     Indication: PROSTATE CANCER
     Dosage: INTRAMUSCULAR
     Route: 030
     Dates: start: 20041001

REACTIONS (2)
  - INJECTION SITE PAIN [None]
  - TENDONITIS [None]
